FAERS Safety Report 5114625-1 (Version None)
Quarter: 2006Q3

REPORT INFORMATION
  Report Type: 
  Country: None (occurrence: None)
  Receive Date: 20060922
  Receipt Date: 20060908
  Transmission Date: 20061208
  Serious: Yes (Hospitalization, Other)
  Sender: FDA-Public Use
  Company Number: CHPA2006US09045

PATIENT
  Age: 77 Year
  Sex: Female
  Weight: 49.9 kg

DRUGS (3)
  1. EXCEDRIN EXTRA STRENGTH (NCH) (CAFFEINE CITRATE, ACETYLSALICYLIC ACID, [Suspect]
     Indication: HEADACHE
     Dosage: 1 DF, 4 TO 5 TIMES DAILY, ORAL
     Route: 048
  2. EXCEDRIN TENSION HEADACHE (NCH) (ACETAMINOPHEN (PARACETAMOL), CAFFEINE [Suspect]
     Indication: HEADACHE
     Dosage: 1 DF, 4 TO 5 TIMES DAILY,
  3. EXCEDRIN TENSION HEADACHE (NCH) (ACETAMINOPHEN (PARACETAMOL), CAFFEINE [Suspect]
     Indication: HEADACHE
     Dosage: ORAL
     Route: 048

REACTIONS (3)
  - DRUG ABUSER [None]
  - DRUG EFFECT DECREASED [None]
  - GASTRIC ULCER [None]
